FAERS Safety Report 8964934 (Version 1)
Quarter: 2012Q4

REPORT INFORMATION
  Report Type: 
  Country: US (occurrence: US)
  Receive Date: 20121213
  Receipt Date: 20121213
  Transmission Date: 20130627
  Serious: No
  Sender: FDA-Public Use
  Company Number: US-BAYER-2012-124722

PATIENT
  Age: 34 Year
  Sex: Male

DRUGS (6)
  1. BETASERON [Suspect]
     Indication: PRODUCT USED FOR UNKNOWN INDICATION
  2. AMPYRA [Suspect]
     Indication: PRODUCT USED FOR UNKNOWN INDICATION
     Dosage: 10 mg, BID
     Dates: start: 20120912
  3. ZOLPIDEM TARTRATE [Concomitant]
     Dosage: 10 mg, UNK
  4. MECLIZINE [Concomitant]
     Dosage: 25 mg, UNK
  5. PENICILLIN VK [Concomitant]
     Dosage: 500 mg, UNK
  6. COPAXONE [Concomitant]
     Dosage: 20 mg, UNK,ONCE DAILY
     Route: 058

REACTIONS (2)
  - Depression [Not Recovered/Not Resolved]
  - Hypoaesthesia [None]
